FAERS Safety Report 6421671-4 (Version None)
Quarter: 2009Q4

REPORT INFORMATION
  Report Type: 
  Country: None (occurrence: None)
  Receive Date: 20091029
  Receipt Date: 20091029
  Transmission Date: 20100525
  Serious: Yes (Other)
  Sender: FDA-Public Use
  Company Number: None

PATIENT
  Age: 54 Year
  Sex: Female
  Weight: 86.1834 kg

DRUGS (2)
  1. CLINDAMYCIN 300MG [Suspect]
     Indication: INFECTION PROPHYLAXIS
     Dosage: 1 CAPSULE 4 X'S PER DAY PO
     Route: 048
     Dates: start: 20091017, end: 20091025
  2. CLINDAMYCIN 300MG [Suspect]
     Indication: WOUND
     Dosage: 1 CAPSULE 4 X'S PER DAY PO
     Route: 048
     Dates: start: 20091017, end: 20091025

REACTIONS (1)
  - DRUG HYPERSENSITIVITY [None]
